FAERS Safety Report 6796332-2 (Version None)
Quarter: 2010Q2

REPORT INFORMATION
  Report Type: 
  Country: None (occurrence: None)
  Receive Date: 20100622
  Receipt Date: 20100607
  Transmission Date: 20101027
  Serious: Yes (Death, Life-Threatening, Hospitalization, Other)
  Sender: FDA-Public Use
  Company Number: 2009003065

PATIENT
  Age: 79 Year
  Sex: Male

DRUGS (20)
  1. ERLOTINIB (ERLOTINIB) (TABLET) (ERLOTINIB) [Suspect]
     Indication: HEPATIC NEOPLASM MALIGNANT
     Dosage: (150 MG, QD), ORAL; (100 MG, QD), ORAL
     Route: 048
     Dates: start: 20091001, end: 20091003
  2. ERLOTINIB (ERLOTINIB) (TABLET) (ERLOTINIB) [Suspect]
     Indication: HEPATIC NEOPLASM MALIGNANT
     Dosage: (150 MG, QD), ORAL; (100 MG, QD), ORAL
     Route: 048
     Dates: start: 20091007, end: 20091015
  3. ERLOTINIB (ERLOTINIB) (TABLET) (ERLOTINIB) [Suspect]
  4. SORAFENIB [Suspect]
     Indication: HEPATIC NEOPLASM MALIGNANT
     Dosage: (800 MG, QD), ORAL
     Route: 048
     Dates: start: 20091001, end: 20091003
  5. SORAFENIB [Suspect]
     Indication: HEPATIC NEOPLASM MALIGNANT
     Dosage: (800 MG, QD), ORAL
     Route: 048
     Dates: start: 20091006, end: 20091015
  6. SORAFENIB [Suspect]
  7. ISOSORBIDE DINITRATE [Concomitant]
  8. ASPIRIN [Concomitant]
  9. AMLODIPINE [Concomitant]
  10. FERROUS FUMARATE [Concomitant]
  11. SALBUTAMOL (SALBUTAMOL) [Concomitant]
  12. ATROVENT [Concomitant]
  13. BECLOMETHASONE DIPROPIONATE [Concomitant]
  14. ALDACTONE [Concomitant]
  15. LASIX [Concomitant]
  16. GAMAT JELLY [Concomitant]
  17. RANITIDINE [Concomitant]
  18. FAMOTIDINE [Concomitant]
  19. SIMVASTATIN [Concomitant]
  20. MYLANTA (MYLANTA) [Concomitant]

REACTIONS (19)
  - ABDOMINAL PAIN [None]
  - ACUTE MYOCARDIAL INFARCTION [None]
  - ANAEMIA [None]
  - ASPARTATE AMINOTRANSFERASE INCREASED [None]
  - BLOOD BILIRUBIN INCREASED [None]
  - CARDIAC FAILURE CONGESTIVE [None]
  - CONDITION AGGRAVATED [None]
  - CONSTIPATION [None]
  - DECREASED APPETITE [None]
  - DIARRHOEA [None]
  - HYPOTENSION [None]
  - HYPOXIA [None]
  - LETHARGY [None]
  - LIVER FUNCTION TEST ABNORMAL [None]
  - PNEUMONIA [None]
  - PULMONARY OEDEMA [None]
  - PYREXIA [None]
  - SPEECH DISORDER [None]
  - VOMITING [None]
